FAERS Safety Report 6256864-2 (Version None)
Quarter: 2009Q3

REPORT INFORMATION
  Report Type: 
  Country: None (occurrence: None)
  Receive Date: 20090701
  Receipt Date: 20090701
  Transmission Date: 20100115
  Serious: Yes (Disabling, Other)
  Sender: FDA-Public Use
  Company Number: None

PATIENT
  Age: 73 Year
  Sex: Female
  Weight: 58.9676 kg

DRUGS (2)
  1. LANTUS [Suspect]
     Indication: DIABETES MELLITUS
     Dosage: USED ABOUT 4-5 YEARS
  2. LANTUS [Suspect]
     Indication: PANCREATIC CARCINOMA
     Dosage: USED ABOUT 4-5 YEARS

REACTIONS (1)
  - PANCREATIC CARCINOMA [None]
